FAERS Safety Report 23453888 (Version 1)
Quarter: 2024Q1

REPORT INFORMATION
  Report Type: Spontaneous
  Country: US (occurrence: US)
  Receive Date: 20240129
  Receipt Date: 20240129
  Transmission Date: 20240410
  Serious: No
  Sender: FDA-Public Use
  Company Number: US-002147023-NVSC2024US019442

PATIENT

DRUGS (1)
  1. KISQALI [Suspect]
     Active Substance: RIBOCICLIB
     Indication: HER2 positive breast cancer
     Dosage: UNK UNK, ONCE/SINGLE
     Route: 048
     Dates: start: 20240126, end: 20240126

REACTIONS (1)
  - Liver function test increased [Recovering/Resolving]
